FAERS Safety Report 5118345-9 (Version None)
Quarter: 2006Q4

REPORT INFORMATION
  Report Type: 
  Country: None (occurrence: None)
  Receive Date: 20061002
  Receipt Date: 20060906
  Transmission Date: 20070319
  Serious: Yes (Death, Hospitalization)
  Sender: FDA-Public Use
  Company Number: SE-AMGEN-UK192998

PATIENT
  Age: 17 Year
  Sex: Male

DRUGS (6)
  1. NEULASTA [Suspect]
     Indication: CHEMOTHERAPY
     Route: 065
     Dates: start: 20060131
  2. NEUPOGEN [Suspect]
     Indication: CHEMOTHERAPY
     Route: 065
  3. IFOSFAMIDE [Suspect]
  4. BLEOMYCIN [Suspect]
     Route: 065
  5. ETOPOSIDE [Concomitant]
  6. CISPLATIN [Concomitant]
     Route: 065

REACTIONS (3)
  - NEOPLASM PROGRESSION [None]
  - PNEUMONITIS [None]
  - PULMONARY FIBROSIS [None]
